FAERS Safety Report 7790932-9 (Version None)
Quarter: 2011Q3

REPORT INFORMATION
  Report Type: 
  Country: None (occurrence: None)
  Receive Date: 20110930
  Receipt Date: 20110930
  Transmission Date: 20111222
  Serious: Yes (Hospitalization, Other)
  Sender: FDA-Public Use
  Company Number: None

PATIENT
  Sex: Female

DRUGS (1)
  1. ROCEPHIN [Suspect]
     Indication: ENDOCARDITIS
     Dosage: 2 GRAMS
     Route: 042
     Dates: start: 20110912, end: 20110914

REACTIONS (1)
  - DRUG HYPERSENSITIVITY [None]
